FAERS Safety Report 8577789-3 (Version None)
Quarter: 2012Q3

REPORT INFORMATION
  Report Type: 
  Country: None (occurrence: None)
  Receive Date: 20120808
  Receipt Date: 20120726
  Transmission Date: 20120928
  Serious: No
  Sender: FDA-Public Use
  Company Number: US-BIOGENIDEC-2011BI012631

PATIENT
  Sex: Female

DRUGS (1)
  1. TYSABRI [Suspect]
     Indication: MULTIPLE SCLEROSIS
     Route: 042
     Dates: start: 20110222, end: 20111019

REACTIONS (11)
  - PAIN IN EXTREMITY [None]
  - INFLUENZA LIKE ILLNESS [None]
  - DYSPNOEA [None]
  - URTICARIA [None]
  - ADVERSE DRUG REACTION [None]
  - ERYTHEMA [None]
  - PRURITUS [None]
  - PRURITUS GENERALISED [None]
  - OEDEMA PERIPHERAL [None]
  - RASH GENERALISED [None]
  - RASH PRURITIC [None]
